FAERS Safety Report 17727172 (Version 2)
Quarter: 2020Q3

REPORT INFORMATION
  Report Type: Spontaneous
  Country: US (occurrence: US)
  Receive Date: 20200430
  Receipt Date: 20200806
  Transmission Date: 20201102
  Serious: Yes (Hospitalization, Other)
  Sender: FDA-Public Use
  Company Number: US-SA-2020SA111509

PATIENT

DRUGS (27)
  1. VITAMIN D [ERGOCALCIFEROL] [Concomitant]
     Active Substance: ERGOCALCIFEROL
     Dosage: UNK
  2. POTASSIUM [Concomitant]
     Active Substance: POTASSIUM
     Dosage: UNK
  3. ALLOPURINOL. [Concomitant]
     Active Substance: ALLOPURINOL
     Dosage: UNK
  4. MIFEPRISTONE [Suspect]
     Active Substance: MIFEPRISTONE
     Indication: CUSHING^S SYNDROME
     Dosage: 300 MG, QD
     Route: 048
     Dates: start: 20191226, end: 20200213
  5. ELIQUIS [Suspect]
     Active Substance: APIXABAN
     Dosage: UNK
  6. MIRALAX [Concomitant]
     Active Substance: POLYETHYLENE GLYCOL 3350
     Dosage: UNK
  7. PRADAXA [Concomitant]
     Active Substance: DABIGATRAN ETEXILATE MESYLATE
     Dosage: UNK
  8. METOLAZONE. [Concomitant]
     Active Substance: METOLAZONE
     Dosage: UNK
  9. ISOSORBIDE MONONITRATE. [Concomitant]
     Active Substance: ISOSORBIDE MONONITRATE
     Dosage: UNK
  10. HUMALOG [Concomitant]
     Active Substance: INSULIN LISPRO
     Dosage: UNK
  11. MIFEPRISTONE [Suspect]
     Active Substance: MIFEPRISTONE
     Dosage: 600 MG, QD
     Route: 048
     Dates: start: 20200214
  12. RANEXA [Concomitant]
     Active Substance: RANOLAZINE
     Dosage: UNK
  13. METOLAZONE. [Concomitant]
     Active Substance: METOLAZONE
     Dosage: UNK
     Dates: start: 20200214
  14. GABAPENTIN. [Concomitant]
     Active Substance: GABAPENTIN
     Dosage: UNK
  15. AMIODARONE [Concomitant]
     Active Substance: AMIODARONE
     Dosage: UNK
  16. TOUJEO [Concomitant]
     Active Substance: INSULIN GLARGINE
     Dosage: UNK
  17. NORCO [Concomitant]
     Active Substance: ACETAMINOPHEN\HYDROCODONE BITARTRATE
     Dosage: UNK
  18. TRADJENTA [Concomitant]
     Active Substance: LINAGLIPTIN
     Dosage: UNK
  19. PLAVIX [Suspect]
     Active Substance: CLOPIDOGREL BISULFATE
     Dosage: UNK
  20. HYDRALAZINE [Concomitant]
     Active Substance: HYDRALAZINE HYDROCHLORIDE
     Dosage: UNK
  21. ASPIRINE [Interacting]
     Active Substance: ASPIRIN
     Dosage: UNK
  22. TRAMADOL. [Concomitant]
     Active Substance: TRAMADOL
     Dosage: UNK
  23. METOPROLOL SUCCINATE. [Concomitant]
     Active Substance: METOPROLOL SUCCINATE
     Dosage: UNK
  24. METOLAZONE. [Concomitant]
     Active Substance: METOLAZONE
     Dosage: UNK
  25. MELATONIN [Concomitant]
     Active Substance: MELATONIN
     Dosage: UNK
  26. LEVOTHYROXINE. [Concomitant]
     Active Substance: LEVOTHYROXINE
     Dosage: UNK
  27. DEMADEX [Concomitant]
     Active Substance: TORSEMIDE
     Dosage: UNK

REACTIONS (29)
  - Heart rate increased [Unknown]
  - Dysuria [Unknown]
  - Oedema peripheral [Recovering/Resolving]
  - Muscular weakness [Unknown]
  - Blood glucose fluctuation [Not Recovered/Not Resolved]
  - Myalgia [Recovering/Resolving]
  - Asthenia [Recovered/Resolved]
  - Fatigue [Recovering/Resolving]
  - Nausea [Recovered/Resolved]
  - Dyspnoea [Recovered/Resolved]
  - Chest pain [Not Recovered/Not Resolved]
  - Abdominal pain upper [Recovering/Resolving]
  - Blood phosphorus increased [Unknown]
  - Blood potassium decreased [Recovered/Resolved]
  - Atrial fibrillation [Not Recovered/Not Resolved]
  - Lip swelling [Unknown]
  - Cardiac failure [Unknown]
  - Dizziness [Recovered/Resolved]
  - Abdominal discomfort [Not Recovered/Not Resolved]
  - Constipation [Recovered/Resolved]
  - Haemoglobin decreased [Unknown]
  - Haematochezia [Unknown]
  - Chronic kidney disease [Unknown]
  - Gastrointestinal motility disorder [Not Recovered/Not Resolved]
  - Blood pressure decreased [Not Recovered/Not Resolved]
  - Drug interaction [Unknown]
  - Acute kidney injury [Unknown]
  - Blood pressure increased [Unknown]
  - Fall [Unknown]

NARRATIVE: CASE EVENT DATE: 2018
